FAERS Safety Report 6954706-0 (Version None)
Quarter: 2010Q3

REPORT INFORMATION
  Report Type: 
  Country: None (occurrence: None)
  Receive Date: 20100829
  Receipt Date: 20100820
  Transmission Date: 20110219
  Serious: No
  Sender: FDA-Public Use
  Company Number: US-US-EMD SERONO, INC.-7015265

PATIENT
  Sex: Male

DRUGS (2)
  1. REBIF [Suspect]
     Indication: MULTIPLE SCLEROSIS
     Route: 058
     Dates: start: 20040223, end: 20100401
  2. REBIF [Suspect]
     Dates: start: 20100601

REACTIONS (3)
  - INJECTION SITE PAIN [None]
  - MALAISE [None]
  - THYROID NEOPLASM [None]
